FAERS Safety Report 6253854-0 (Version None)
Quarter: 2009Q3

REPORT INFORMATION
  Report Type: 
  Country: None (occurrence: None)
  Receive Date: 20090702
  Receipt Date: 20090623
  Transmission Date: 20100115
  Serious: Yes (Other)
  Sender: FDA-Public Use
  Company Number: US-BAYER-200921884NA

PATIENT
  Sex: Female

DRUGS (2)
  1. LEUKINE [Suspect]
     Indication: CHRONIC LYMPHOCYTIC LEUKAEMIA
     Dosage: TOTAL DAILY DOSE: 500 ?G
     Route: 042
     Dates: start: 20090519, end: 20090523
  2. OXYGEN [Concomitant]

REACTIONS (6)
  - DEPRESSED LEVEL OF CONSCIOUSNESS [None]
  - DYSPNOEA [None]
  - HYPERHIDROSIS [None]
  - MIOSIS [None]
  - OXYGEN SATURATION DECREASED [None]
  - PALLOR [None]
